FAERS Safety Report 12695271 (Version 1)
Quarter: 2016Q3

REPORT INFORMATION
  Report Type: Spontaneous
  Country: CN (occurrence: CN)
  Receive Date: 20160829
  Receipt Date: 20160829
  Transmission Date: 20161109
  Serious: Yes (Other)
  Sender: FDA-Public Use
  Company Number: CN-SA-2016SA157078

PATIENT
  Age: 62 Year
  Sex: Female
  Weight: 50 kg

DRUGS (4)
  1. OXALIPLATIN. [Suspect]
     Active Substance: OXALIPLATIN
     Indication: COLON CANCER
     Route: 041
     Dates: start: 20160421, end: 20160421
  2. GLUCOSE INJECTION [Concomitant]
     Indication: COLON CANCER
     Route: 041
     Dates: start: 20160421, end: 20160421
  3. OXALIPLATIN. [Suspect]
     Active Substance: OXALIPLATIN
     Indication: COLON CANCER
     Route: 041
     Dates: start: 20160331, end: 20160331
  4. CAPECITABINE. [Concomitant]
     Active Substance: CAPECITABINE
     Dosage: 1.5 G BID FOR 14 DAYS .
     Route: 048
     Dates: start: 20160421

REACTIONS (3)
  - Seizure [Recovered/Resolved]
  - Monoplegia [Recovered/Resolved]
  - Reflux laryngitis [Recovered/Resolved]

NARRATIVE: CASE EVENT DATE: 20160421
